FAERS Safety Report 4849482-1 (Version None)
Quarter: 2005Q4

REPORT INFORMATION
  Report Type: 
  Country: None (occurrence: None)
  Receive Date: 20051207
  Receipt Date: 20051118
  Transmission Date: 20060501
  Serious: Yes (Other)
  Sender: FDA-Public Use
  Company Number: 2005BI012459

PATIENT
  Age: 53 Year
  Sex: Female

DRUGS (5)
  1. AVONEX [Suspect]
     Indication: MULTIPLE SCLEROSIS
     Dosage: Q4D; IM
     Route: 030
     Dates: start: 20020101, end: 20030101
  2. AVONEX [Suspect]
     Indication: MULTIPLE SCLEROSIS
     Dosage: Q4D; IM
     Route: 030
     Dates: start: 20030101, end: 20050101
  3. NOVANTRONE [Concomitant]
  4. TYLENOL [Concomitant]
  5. ADVIL [Concomitant]

REACTIONS (6)
  - DIFFICULTY IN WALKING [None]
  - DISEASE PROGRESSION [None]
  - MULTIPLE SCLEROSIS [None]
  - OVARIAN CYST [None]
  - PARAESTHESIA [None]
  - POLYP [None]
